FAERS Safety Report 5583700-X (Version None)
Quarter: 2008Q1

REPORT INFORMATION
  Report Type: 
  Country: None (occurrence: None)
  Receive Date: 20080103
  Receipt Date: 20071226
  Transmission Date: 20080703
  Serious: Yes (Death)
  Sender: FDA-Public Use
  Company Number: 163-21880-07110508

PATIENT
  Age: 78 Year
  Sex: Male

DRUGS (1)
  1. REVLIMID [Suspect]
     Indication: 5Q-SYNDROME
     Dosage: 5 MG, DAILY, ORAL
     Route: 048
     Dates: start: 20070611, end: 20070601

REACTIONS (2)
  - DISEASE PROGRESSION [None]
  - MYELODYSPLASTIC SYNDROME [None]
